FAERS Safety Report 12724939 (Version 1)
Quarter: 2016Q3

REPORT INFORMATION
  Report Type: Other
  Country: None (occurrence: US)
  Receive Date: 20160908
  Receipt Date: 20160908
  Transmission Date: 20161109
  Serious: No
  Sender: FDA-Public Use
  Company Number: US-COL_17697_2014

PATIENT
  Sex: Female

DRUGS (3)
  1. COLGATE TOTAL WHITENING [Suspect]
     Active Substance: SODIUM FLUORIDE\TRICLOSAN
     Indication: PRODUCT USED FOR UNKNOWN INDICATION
     Dosage: COVERED THE WHOLE HEAD OF THE TOOTHBRUSH/BID/
     Route: 048
     Dates: start: 20150807, end: 20150810
  2. COLGATE TOTAL WHITENING [Suspect]
     Active Substance: SODIUM FLUORIDE\TRICLOSAN
     Dosage: COVERS THE WHOLE HEAD OF HER TOOTHBRUSH WITH THE PRODUCT/BID/
     Route: 048
     Dates: start: 20140820
  3. COLGATE TOTAL WHITENING [Suspect]
     Active Substance: SODIUM FLUORIDE\TRICLOSAN
     Dosage: A LITTLE MORE THAN A PEA SIZE AMOUNT/ ONCE IN MORNING AND NIGHT/
     Route: 048

REACTIONS (3)
  - Gingival bleeding [Recovered/Resolved]
  - Gingival pain [Not Recovered/Not Resolved]
  - Gingival erythema [Not Recovered/Not Resolved]

NARRATIVE: CASE EVENT DATE: 201408
